FAERS Safety Report 4698105-3 (Version None)
Quarter: 2005Q2

REPORT INFORMATION
  Report Type: 
  Country: None (occurrence: None)
  Receive Date: 20050622
  Receipt Date: 20050622
  Transmission Date: 20051028
  Serious: Yes (Hospitalization)
  Sender: FDA-Public Use
  Company Number: None

PATIENT
  Age: 72 Year
  Sex: Male
  Weight: 76.2043 kg

DRUGS (1)
  1. TARCEVA [Suspect]
     Indication: HEPATIC CANCER METASTATIC
     Dosage: 150MG   QD   ORAL
     Route: 048
     Dates: start: 20050525, end: 20050525

REACTIONS (2)
  - BLOOD PRESSURE DECREASED [None]
  - HAEMATEMESIS [None]
